FAERS Safety Report 4667532-2 (Version None)
Quarter: 2005Q2

REPORT INFORMATION
  Report Type: 
  Country: None (occurrence: None)
  Receive Date: 20050520
  Receipt Date: 20050511
  Transmission Date: 20051028
  Serious: Yes (Hospitalization)
  Sender: FDA-Public Use
  Company Number: US-JNJFOC-20050302871

PATIENT
  Sex: Female
  Weight: 70.31 kg

DRUGS (46)
  1. NATRECOR [Suspect]
     Route: 042
  2. STARLIX [Concomitant]
     Route: 049
  3. XALANTAN [Concomitant]
     Dosage: 1 GTT IN BOTH EYES
     Route: 047
  4. ZOLOFT [Concomitant]
     Route: 049
  5. DIOVAN [Concomitant]
     Route: 049
  6. ALBUTEROL [Concomitant]
     Dosage: 1 PUFF EVERY 6 HOURS
     Route: 055
  7. PROTONIX [Concomitant]
     Route: 049
  8. TYLENOL (CAPLET) [Concomitant]
     Dosage: AS NECESSARY TWICE DAILY
     Route: 049
  9. COREG [Concomitant]
     Route: 049
  10. COREG [Concomitant]
     Dosage: 12.50 MG IN AM; 6.25 MG IN PM
     Route: 049
  11. COREG [Concomitant]
     Route: 049
  12. COREG [Concomitant]
     Route: 049
  13. SPIRONOLACTONE [Concomitant]
     Route: 049
  14. PRANDIN [Concomitant]
     Route: 049
  15. PRANDIN [Concomitant]
     Route: 049
  16. PRANDIN [Concomitant]
     Route: 049
  17. LANTUS [Concomitant]
     Dosage: EVERY EVENING
     Route: 058
  18. LANTUS [Concomitant]
     Dosage: EVERY EVENING
     Route: 058
  19. LANTUS [Concomitant]
     Dosage: EVERY EVENING
     Route: 058
  20. LANTUS [Concomitant]
     Dosage: EVERY EVENING
     Route: 058
  21. LANTUS [Concomitant]
     Dosage: EVERY EVENING
     Route: 058
  22. LANTUS [Concomitant]
     Dosage: EVERY EVENING
     Route: 058
  23. LANTUS [Concomitant]
     Dosage: EVERY EVENING
     Route: 058
  24. DIGOXIN [Concomitant]
     Route: 049
  25. BRIMONIDINE TARTRATE [Concomitant]
     Dosage: ONE DROP IN EACH EYE
     Route: 047
  26. SENOKOT [Concomitant]
     Dosage: 2 TABLETS DAILY
     Route: 049
  27. DIOVAN [Concomitant]
     Route: 049
  28. REGULAR INSULIN [Concomitant]
     Dosage: SLIDING SCALE 3-10 UNITS PER BLOOD SUGAR LEVELS
     Route: 058
  29. REGULAR INSULIN [Concomitant]
     Dosage: SLIDING SCALE 2-10 UNITS PER BLOOD SUGAR VALUES
     Route: 058
  30. RAMIPRIL [Concomitant]
     Route: 049
  31. NITROGLYCERIN TRANSDERMAL PATCH [Concomitant]
     Route: 062
  32. HUMULIN 70/30 [Concomitant]
     Route: 058
  33. HUMULIN 70/30 [Concomitant]
     Dosage: 25 UNITS IN AM AND 15 UNITS IN PM
     Route: 058
  34. LASIX [Concomitant]
     Route: 049
  35. LASIX [Concomitant]
     Route: 049
  36. LASIX [Concomitant]
     Route: 049
  37. BENADRYL [Concomitant]
     Route: 049
  38. NPH INSULIN [Concomitant]
     Route: 058
  39. NPH INSULIN [Concomitant]
     Route: 058
  40. NPH INSULIN [Concomitant]
     Route: 058
  41. NPH INSULIN [Concomitant]
     Dosage: EVERY MORNING
     Route: 058
  42. NPH INSULIN [Concomitant]
     Dosage: EVERY MORNING
     Route: 058
  43. NPH INSULIN [Concomitant]
     Dosage: EVERY MORNING
     Route: 058
  44. NPH INSULIN [Concomitant]
     Dosage: EVERY MORNING
     Route: 058
  45. CIPRO [Concomitant]
     Dosage: TREATING DRUG FOR PNEUMONIA
     Route: 049
  46. LEVAQUIN [Concomitant]
     Dosage: TREATMENT FOR PNEUMONIA
     Route: 049

REACTIONS (4)
  - BLOOD GLUCOSE INCREASED [None]
  - DIABETES MELLITUS INADEQUATE CONTROL [None]
  - INSULIN RESISTANCE [None]
  - PNEUMONIA [None]
